FAERS Safety Report 6316123-6 (Version None)
Quarter: 2009Q3

REPORT INFORMATION
  Report Type: 
  Country: None (occurrence: None)
  Receive Date: 20090820
  Receipt Date: 20090814
  Transmission Date: 20100115
  Serious: Yes (Death, Hospitalization)
  Sender: FDA-Public Use
  Company Number: PHHO2009DE08632

PATIENT
  Sex: Male
  Weight: 91.5 kg

DRUGS (1)
  1. RAD 666 RAD+TAB [Suspect]
     Indication: METASTATIC RENAL CELL CARCINOMA
     Dosage: 10 MG/DAY
     Route: 048
     Dates: start: 20090627, end: 20090702

REACTIONS (20)
  - BLOOD CREATININE INCREASED [None]
  - C-REACTIVE PROTEIN INCREASED [None]
  - CATHETER SITE INFLAMMATION [None]
  - CHEST PAIN [None]
  - COUGH [None]
  - CREPITATIONS [None]
  - DERMATITIS ALLERGIC [None]
  - DISORIENTATION [None]
  - DYSPNOEA [None]
  - FIBRIN D DIMER INCREASED [None]
  - GENERAL PHYSICAL HEALTH DETERIORATION [None]
  - LUNG DISORDER [None]
  - MULTI-ORGAN FAILURE [None]
  - PNEUMONIA [None]
  - PYREXIA [None]
  - RALES [None]
  - SILICOSIS [None]
  - SKIN INFECTION [None]
  - STAPHYLOCOCCAL SEPSIS [None]
  - VOMITING [None]
